FAERS Safety Report 17880323 (Version 1)
Quarter: 2020Q2

REPORT INFORMATION
  Report Type: Spontaneous
  Country: CA (occurrence: CA)
  Receive Date: 20200610
  Receipt Date: 20200610
  Transmission Date: 20200714
  Serious: Yes (Other)
  Sender: FDA-Public Use
  Company Number: CA-ROCHE-2615798

PATIENT
  Sex: Female

DRUGS (1)
  1. OCREVUS [Suspect]
     Active Substance: OCRELIZUMAB
     Indication: MULTIPLE SCLEROSIS
     Route: 065

REACTIONS (8)
  - Visual impairment [Unknown]
  - Muscle spasticity [Unknown]
  - B-lymphocyte count decreased [Unknown]
  - Cerebral infarction [Unknown]
  - Speech disorder [Unknown]
  - Hemiparesis [Unknown]
  - Fear [Unknown]
  - Carotid artery dissection [Unknown]

NARRATIVE: CASE EVENT DATE: 2019
